FAERS Safety Report 6967661-4 (Version None)
Quarter: 2010Q3

REPORT INFORMATION
  Report Type: 
  Country: None (occurrence: None)
  Receive Date: 20100907
  Receipt Date: 20100826
  Transmission Date: 20110219
  Serious: Yes (Other)
  Sender: FDA-Public Use
  Company Number: US-PFIZER INC-2010108521

PATIENT
  Sex: Female

DRUGS (4)
  1. VFEND [Suspect]
     Indication: ASPERGILLOSIS
     Dosage: 300 MG, 2X/DAY
     Dates: start: 20100825
  2. ALBUTEROL [Concomitant]
     Dosage: UNK
     Route: 045
  3. ADVAIR DISKUS 100/50 [Concomitant]
     Dosage: UNK
     Route: 045
  4. BACTRIM [Concomitant]
     Dosage: UNK

REACTIONS (1)
  - VISUAL IMPAIRMENT [None]
